FAERS Safety Report 6132555-3 (Version None)
Quarter: 2009Q1

REPORT INFORMATION
  Report Type: 
  Country: None (occurrence: None)
  Receive Date: 20090325
  Receipt Date: 20090318
  Transmission Date: 20090719
  Serious: Yes (Hospitalization)
  Sender: FDA-Public Use
  Company Number: IT-ABBOTT-08P-083-0476777-00

PATIENT
  Sex: Female
  Weight: 64 kg

DRUGS (10)
  1. HUMIRA [Suspect]
     Indication: RHEUMATOID ARTHRITIS
     Route: 058
     Dates: start: 20050419, end: 20080613
  2. HUMIRA [Suspect]
     Route: 058
     Dates: start: 20090129
  3. COMMERCIAL HUMIRA [Concomitant]
     Indication: RHEUMATOID ARTHRITIS
     Route: 058
     Dates: start: 20040901
  4. ARAVA [Concomitant]
     Indication: RHEUMATOID ARTHRITIS
  5. MEDROL [Concomitant]
     Indication: RHEUMATOID ARTHRITIS
     Dates: start: 19940101
  6. ACTONEL [Concomitant]
     Indication: OSTEOPOROSIS
  7. DIFIX [Concomitant]
     Indication: OSTEOPOROSIS
  8. ACEDIUR [Concomitant]
     Indication: HYPERTENSION
     Dosage: 50/25 MG
     Dates: end: 20080630
  9. CO-APROVEL [Concomitant]
     Indication: HYPERTENSION
     Dates: start: 20080630
  10. ASPIRIN [Concomitant]
     Indication: HYPERTENSION
     Dates: start: 20080630

REACTIONS (1)
  - ISCHAEMIC STROKE [None]
